FAERS Safety Report 6744401-5 (Version None)
Quarter: 2010Q2

REPORT INFORMATION
  Report Type: 
  Country: None (occurrence: None)
  Receive Date: 20100527
  Receipt Date: 20100519
  Transmission Date: 20101027
  Serious: Yes (Other)
  Sender: FDA-Public Use
  Company Number: JP-PFIZER INC-2010064820

PATIENT
  Sex: Female

DRUGS (2)
  1. SOLANAX [Suspect]
     Dosage: UNK
     Route: 048
  2. LENDORMIN [Concomitant]
     Indication: INSOMNIA
     Dosage: UNK
     Route: 048

REACTIONS (2)
  - DYSPNOEA [None]
  - PALPITATIONS [None]
